FAERS Safety Report 17600384 (Version 1)
Quarter: 2020Q1

REPORT INFORMATION
  Report Type: Spontaneous
  Country: FR (occurrence: FR)
  Receive Date: 20200330
  Receipt Date: 20200330
  Transmission Date: 20200409
  Serious: Yes (Hospitalization)
  Sender: FDA-Public Use
  Company Number: FR-MYLANLABS-2020M1032611

PATIENT
  Age: 73 Year
  Sex: Female

DRUGS (12)
  1. INNOHEP [Concomitant]
     Active Substance: TINZAPARIN SODIUM
     Dosage: 4500 INTERNATIONAL UNIT, QD
     Route: 058
     Dates: start: 20200205
  2. ALPRAZOLAM. [Suspect]
     Active Substance: ALPRAZOLAM
     Indication: ANXIETY DISORDER
     Dosage: 2 MILLIGRAM, QD
     Route: 048
     Dates: start: 20200214, end: 20200217
  3. BIPRETERAX                         /01421201/ [Suspect]
     Active Substance: INDAPAMIDE\PERINDOPRIL ERBUMINE
     Indication: HYPERTENSION
     Dosage: 1 DOSAGE FORM, QD (5MG/1.25MG 1X/J)
     Route: 048
     Dates: start: 201701, end: 20200217
  4. ESOMEPRAZOLE. [Concomitant]
     Active Substance: ESOMEPRAZOLE MAGNESIUM
     Dosage: 40 MILLIGRAM, QD
     Route: 048
     Dates: start: 20200205
  5. NEFOPAM [Concomitant]
     Active Substance: NEFOPAM
     Dosage: UNK
     Route: 048
     Dates: start: 20200205
  6. TRIMEBUTINE [Concomitant]
     Active Substance: TRIMEBUTINE
     Dosage: 300 MILLIGRAM, PRN (AS NECESSARY)
     Route: 048
     Dates: start: 20200205
  7. PAROXETINE. [Suspect]
     Active Substance: PAROXETINE
     Indication: ANXIETY DISORDER
     Dosage: 20 MILLIGRAM, QD
     Route: 048
     Dates: start: 20200214, end: 20200217
  8. SPASFON                            /00765801/ [Concomitant]
     Active Substance: PHLOROGLUCINOL\1,3,5-TRIMETHOXYBENZENE
     Dosage: UNK
     Route: 048
     Dates: start: 20200205
  9. DOLIPRANE [Concomitant]
     Active Substance: ACETAMINOPHEN
     Dosage: UNK
     Route: 048
  10. COVERAM [Concomitant]
     Active Substance: AMLODIPINE\PERINDOPRIL
     Dosage: 1 DOSAGE FORM, QD (5 MG/5 MG)
     Route: 048
  11. SERESTA [Concomitant]
     Active Substance: OXAZEPAM
     Dosage: 10 MILLIGRAM, QD
     Route: 048
     Dates: start: 20200214
  12. INEGY [Concomitant]
     Active Substance: EZETIMIBE\SIMVASTATIN
     Dosage: 1 DOSAGE FORM, QD
     Route: 048

REACTIONS (1)
  - Hyponatraemia [Recovered/Resolved]

NARRATIVE: CASE EVENT DATE: 20200216
